FAERS Safety Report 10949779 (Version 9)
Quarter: 2015Q2

REPORT INFORMATION
  Report Type: Spontaneous
  Country: US (occurrence: US)
  Receive Date: 20150324
  Receipt Date: 20150629
  Transmission Date: 20150821
  Serious: Yes (Hospitalization, Other)
  Sender: FDA-Public Use
  Company Number: US-UNITED THERAPEUTICS-UNT-2015-002633

PATIENT
  Age: 70 Year
  Sex: Male
  Weight: 122.9 kg

DRUGS (10)
  1. REMODULIN [Suspect]
     Active Substance: TREPROSTINIL
     Dosage: 0.028 ?G/KG, CONTINUING
     Route: 041
     Dates: start: 20150307
  2. LISINOPRIL. [Suspect]
     Active Substance: LISINOPRIL
     Indication: PRODUCT USED FOR UNKNOWN INDICATION
  3. WARFARIN [Concomitant]
     Active Substance: WARFARIN
     Indication: PRODUCT USED FOR UNKNOWN INDICATION
  4. REMODULIN [Suspect]
     Active Substance: TREPROSTINIL
     Dosage: 0.020 ?G/KG, CONTINUING
     Route: 041
     Dates: start: 20150309
  5. ELIQUIS [Concomitant]
     Active Substance: APIXABAN
     Indication: PRODUCT USED FOR UNKNOWN INDICATION
  6. REMODULIN [Suspect]
     Active Substance: TREPROSTINIL
     Dosage: 0.002 ?G/KG, CONTINUING
     Route: 041
     Dates: start: 20150309
  7. ADEMPAS [Suspect]
     Active Substance: RIOCIGUAT
     Indication: PRODUCT USED FOR UNKNOWN INDICATION
  8. REMODULIN [Suspect]
     Active Substance: TREPROSTINIL
     Dosage: 0.036 ?G/KG, CONTINUING
     Route: 041
  9. REMODULIN [Suspect]
     Active Substance: TREPROSTINIL
     Indication: PULMONARY ARTERIAL HYPERTENSION
     Dosage: 0.002 ?G/KG, CONTINUING
     Route: 041
     Dates: start: 20150225
  10. BUMETANIDE. [Suspect]
     Active Substance: BUMETANIDE
     Indication: PULMONARY ARTERIAL HYPERTENSION

REACTIONS (10)
  - Chills [Recovered/Resolved]
  - Weight increased [Recovered/Resolved]
  - Gout [Recovered/Resolved]
  - Decreased appetite [Not Recovered/Not Resolved]
  - Dyspnoea [Recovered/Resolved]
  - Diabetic neuropathy [Not Recovered/Not Resolved]
  - Hypotension [Recovered/Resolved]
  - Oedema [Recovered/Resolved]
  - Pain in jaw [Recovered/Resolved]
  - Diarrhoea [Unknown]

NARRATIVE: CASE EVENT DATE: 2015
